FAERS Safety Report 25487279 (Version 1)
Quarter: 2025Q2

REPORT INFORMATION
  Report Type: Spontaneous
  Country: US (occurrence: US)
  Receive Date: 20250627
  Receipt Date: 20250627
  Transmission Date: 20250717
  Serious: Yes (Death, Hospitalization, Other)
  Sender: Norvium Bioscience
  Company Number: US-Norvium Bioscience LLC-080312

PATIENT
  Age: 21 Year
  Sex: Female

DRUGS (1)
  1. METFORMIN HYDROCHLORIDE [Suspect]
     Active Substance: METFORMIN HYDROCHLORIDE
     Indication: Product used for unknown indication
     Route: 048

REACTIONS (8)
  - Hypoglycaemia [Unknown]
  - Overdose [Unknown]
  - Hypothermia [Unknown]
  - Agitation [Unknown]
  - Abdominal pain [Unknown]
  - Acidosis [Fatal]
  - Cardiac arrest [Fatal]
  - Distributive shock [Fatal]
